FAERS Safety Report 4588406-1 (Version None)
Quarter: 2005Q1

REPORT INFORMATION
  Report Type: 
  Country: None (occurrence: None)
  Receive Date: 20050215
  Receipt Date: 20050215
  Transmission Date: 20050727
  Serious: Yes (Life-Threatening, Hospitalization)
  Sender: FDA-Public Use
  Company Number: None

PATIENT
  Age: 61 Year
  Sex: Female

DRUGS (1)
  1. HUMIRA [Suspect]
     Dosage: 40MG  Q.O.W.   SUBCUTANEO
     Route: 058
     Dates: start: 20040612, end: 20050113

REACTIONS (6)
  - ATRIAL FIBRILLATION [None]
  - CARDIOMEGALY [None]
  - DIZZINESS [None]
  - IMPAIRED DRIVING ABILITY [None]
  - MUSCULOSKELETAL STIFFNESS [None]
  - NAUSEA [None]
